FAERS Safety Report 8078502-9 (Version None)
Quarter: 2012Q1

REPORT INFORMATION
  Report Type: 
  Country: None (occurrence: None)
  Receive Date: 20120123
  Receipt Date: 20120112
  Transmission Date: 20120608
  Serious: No
  Sender: FDA-Public Use
  Company Number: 2012-00015

PATIENT
  Sex: Male

DRUGS (2)
  1. ZICAM COLD REMEDY CHEWABLES [Suspect]
     Indication: NASOPHARYNGITIS
     Dosage: 1 CHEWABLE EVERY 3 HOURS
     Route: 048
     Dates: start: 20120111, end: 20120112
  2. UNSPECIFIED ZICAM PRODUCT [Suspect]
     Indication: NASOPHARYNGITIS

REACTIONS (1)
  - AGEUSIA [None]
